FAERS Safety Report 7492557-1 (Version None)
Quarter: 2011Q2

REPORT INFORMATION
  Report Type: 
  Country: None (occurrence: None)
  Receive Date: 20110519
  Receipt Date: 20110420
  Transmission Date: 20111010
  Serious: No
  Sender: FDA-Public Use
  Company Number: US-BAYER-2011-035053

PATIENT
  Sex: Female
  Weight: 59 kg

DRUGS (3)
  1. ALEVE (CAPLET) [Suspect]
     Indication: PAIN IN EXTREMITY
     Dosage: 2 DF, BID
     Route: 048
  2. UNSPECIFIED MEDICATION FOR VERTIGO [Concomitant]
     Dosage: UNK UNK, PRN
  3. ALEVE (CAPLET) [Suspect]
     Indication: NON-CARDIAC CHEST PAIN

REACTIONS (1)
  - NO ADVERSE EVENT [None]
